FAERS Safety Report 5659923-8 (Version None)
Quarter: 2008Q1

REPORT INFORMATION
  Report Type: 
  Country: None (occurrence: None)
  Receive Date: 20080311
  Receipt Date: 20080227
  Transmission Date: 20080703
  Serious: Yes (Death)
  Sender: FDA-Public Use
  Company Number: JP-AMGEN-US267665

PATIENT
  Age: 74 Year
  Sex: Female

DRUGS (2)
  1. ENBREL [Suspect]
     Indication: RHEUMATOID ARTHRITIS
     Route: 058
  2. RIMATIL [Concomitant]
     Dosage: UNSPECIFIED
     Route: 065

REACTIONS (2)
  - PYREXIA [None]
  - SEPSIS [None]
